FAERS Safety Report 24462319 (Version 1)
Quarter: 2024Q4

REPORT INFORMATION
  Report Type: Report from Study
  Country: IL (occurrence: IL)
  Receive Date: 20241018
  Receipt Date: 20241018
  Transmission Date: 20250115
  Serious: No
  Sender: ROCHE
  Company Number: IL-ROCHE-3579904

PATIENT

DRUGS (1)
  1. RITUXIMAB [Interacting]
     Active Substance: RITUXIMAB
     Indication: Rheumatoid arthritis
     Route: 065

REACTIONS (2)
  - Therapeutic response decreased [Unknown]
  - Vaccine interaction [Unknown]
